FAERS Safety Report 7656290 (Version 4)
Quarter: 2013Q2

REPORT INFORMATION
  Report Type: Spontaneous
  Country: US (occurrence: US)
  Receive Date: 20101104
  Receipt Date: 20130419
  Transmission Date: 20140414
  Serious: Yes (Life-Threatening, Hospitalization, Other)
  Sender: FDA-Public Use
  Company Number: US-BAYER-201039246NA

PATIENT
  Age: 33 Year
  Sex: Female
  Weight: 81.63 kg

DRUGS (10)
  1. YASMIN [Suspect]
     Indication: CONTRACEPTION
     Dosage: UNK UNK, QD
     Route: 048
     Dates: start: 20080815, end: 20100105
  2. YASMIN [Suspect]
     Indication: PREMENSTRUAL SYNDROME
  3. COREG [Concomitant]
     Dosage: 3.125 MG, UNK
  4. ASPIRIN [Concomitant]
     Dosage: 325 MG, UNK
  5. VITAMIN D3 [Concomitant]
     Dosage: 10000 UNK, UNK
  6. DEPAKOTE [Concomitant]
  7. NEXIUM [Concomitant]
  8. SINEMET CR [Concomitant]
  9. ATIVAN [Concomitant]
  10. ZYRTEC [Concomitant]

REACTIONS (10)
  - Cardiac arrest [None]
  - Myocardial infarction [None]
  - Brain injury [None]
  - Ventricular fibrillation [None]
  - Sinus tachycardia [None]
  - Electrocardiogram QT prolonged [None]
  - Coma [None]
  - Movement disorder [None]
  - Laryngeal granuloma [None]
  - Torticollis [None]
